FAERS Safety Report 11719569 (Version 1)
Quarter: 2015Q4

REPORT INFORMATION
  Report Type: Spontaneous
  Country: US (occurrence: US)
  Receive Date: 20151110
  Receipt Date: 20151110
  Transmission Date: 20160304
  Serious: Yes (Hospitalization, Other)
  Sender: FDA-Public Use
  Company Number: US-PFIZER INC-2015369069

PATIENT
  Age: 68 Year
  Sex: Female

DRUGS (15)
  1. VITAMIN D3 [Concomitant]
     Active Substance: CHOLECALCIFEROL
     Dosage: 1 DF, 1 BY MOUTH
     Route: 048
  2. VITAMIN B12 [Concomitant]
     Active Substance: CYANOCOBALAMIN
     Dosage: 1 DF, 1 BY MOUTH
     Route: 048
  3. PREDNISONE. [Concomitant]
     Active Substance: PREDNISONE
     Indication: INFLAMMATION
     Dosage: 2 DF, 2X/DAY; 5MG TABLET; TWO TABLETS BY MOUTH TWICE A DAY
     Route: 048
  4. WARFARIN [Concomitant]
     Active Substance: WARFARIN
     Indication: BLOOD DISORDER
     Dosage: 2.5 MG, 2X/WEEK; HALF TABLET MONDAY AND FRIDAY
  5. FOLIC ACID. [Concomitant]
     Active Substance: FOLIC ACID
     Dosage: 2 DF, 2 BY MOUTH
     Route: 048
  6. PRAVASTATIN [Concomitant]
     Active Substance: PRAVASTATIN\PRAVASTATIN SODIUM
     Indication: BLOOD CHOLESTEROL
     Dosage: 20 MG, 1X/DAY AT BED TIME
  7. ACIPHEX [Concomitant]
     Active Substance: RABEPRAZOLE SODIUM
     Indication: GASTROOESOPHAGEAL REFLUX DISEASE
     Dosage: 20 MG, 2X/DAY
  8. LYRICA [Suspect]
     Active Substance: PREGABALIN
     Indication: PARAESTHESIA
  9. LOSARTAN. [Concomitant]
     Active Substance: LOSARTAN
     Indication: BLOOD PRESSURE MEASUREMENT
     Dosage: 50 MG, 1X/DAY TABLETS ONE BY MOUTH IN THE MORNING
     Route: 048
  10. LEVOTHYROXINE. [Concomitant]
     Active Substance: LEVOTHYROXINE
     Indication: THYROID DISORDER
     Dosage: 125 ?G, 1X/DAY
  11. TIZANIDINE. [Concomitant]
     Active Substance: TIZANIDINE
     Indication: MUSCLE SPASMS
     Dosage: 4 MG, 3X/DAY TABLET
  12. WARFARIN [Concomitant]
     Active Substance: WARFARIN
     Indication: INTERNATIONAL NORMALISED RATIO ABNORMAL
     Dosage: 5 MG FULL TABLET, 5 DAYS A WEEK (TUES, WED, THURS, SAT, SUN)
  13. LYRICA [Suspect]
     Active Substance: PREGABALIN
     Indication: PAIN
     Dosage: 150 MG, 3X/DAY CAPSULE MORNING, LUNCH, EVENING BY MOUTH
     Route: 048
  14. MEPERIDINE [Concomitant]
     Active Substance: MEPERIDINE
     Indication: PAIN
     Dosage: 50 MG, UP TO 4X/DAY TABLET
  15. ACIPHEX [Concomitant]
     Active Substance: RABEPRAZOLE SODIUM
     Dosage: 20 MG TABLET, AS NEEDED; ONLY WHEN HER STOMACH HURTS SHE TAKES IT

REACTIONS (18)
  - Pulmonary embolism [Recovered/Resolved with Sequelae]
  - Staphylococcal infection [Unknown]
  - Mobility decreased [Unknown]
  - Balance disorder [Unknown]
  - Loss of consciousness [Unknown]
  - Condition aggravated [Recovering/Resolving]
  - Blood cholesterol increased [Unknown]
  - Heart rate decreased [Unknown]
  - Pneumonia viral [Unknown]
  - Neuropathy peripheral [Recovering/Resolving]
  - Muscle spasms [Recovering/Resolving]
  - Pain in extremity [Unknown]
  - Gait disturbance [Recovering/Resolving]
  - Weight increased [Unknown]
  - Blood pressure decreased [Unknown]
  - Dizziness [Recovered/Resolved]
  - Insomnia [Recovering/Resolving]
  - Hypoaesthesia [Unknown]

NARRATIVE: CASE EVENT DATE: 201303
